FAERS Safety Report 9259886 (Version 2)
Quarter: 2013Q3

REPORT INFORMATION
  Report Type: Spontaneous
  Country: US (occurrence: US)
  Receive Date: 20130429
  Receipt Date: 20130812
  Transmission Date: 20140515
  Serious: Yes (Other)
  Sender: FDA-Public Use
  Company Number: US-ASTRAZENECA-2013SE27520

PATIENT
  Age: 679 Month
  Sex: Female

DRUGS (11)
  1. NEXIUM [Suspect]
     Route: 048
     Dates: start: 200109
  2. NEXIUM [Suspect]
     Route: 048
     Dates: start: 20110102
  3. RANITIDINE [Concomitant]
     Dates: start: 20120104
  4. ADVAIR [Concomitant]
     Dosage: 100-50
     Dates: start: 20110201
  5. BYSTOLIC [Concomitant]
     Dates: start: 20110301
  6. PLAVIX [Concomitant]
     Dates: start: 20110103
  7. TRIAMTERENE-HCTZ [Concomitant]
     Dosage: 5-25 MG
     Dates: start: 20110401
  8. VYTORIN [Concomitant]
     Dosage: 10-40 MG
  9. PREVACID [Concomitant]
     Dates: start: 20090402
  10. LORATADINE [Concomitant]
     Dates: start: 20120625
  11. VERAPAMIL [Concomitant]
     Dates: start: 200109

REACTIONS (11)
  - Cerebrovascular accident [Unknown]
  - Osteoporosis [Unknown]
  - Bone disorder [Unknown]
  - Multiple fractures [Unknown]
  - Pain in extremity [Unknown]
  - Gait disturbance [Unknown]
  - Accident [Unknown]
  - Aortic disorder [Unknown]
  - Arthritis [Unknown]
  - Diabetes mellitus [Unknown]
  - Insomnia [Unknown]
